FAERS Safety Report 5914047-7 (Version None)
Quarter: 2008Q4

REPORT INFORMATION
  Report Type: 
  Country: None (occurrence: None)
  Receive Date: 20081009
  Receipt Date: 20081003
  Transmission Date: 20090506
  Serious: Yes (Hospitalization)
  Sender: FDA-Public Use
  Company Number: US-ABBOTT-08P-163-0478810-00

PATIENT
  Sex: Male
  Weight: 90.8 kg

DRUGS (7)
  1. HUMIRA [Suspect]
     Indication: RHEUMATOID ARTHRITIS
     Route: 058
     Dates: start: 20080312, end: 20080901
  2. HUMIRA [Suspect]
     Indication: BEHCET'S SYNDROME
  3. FOLIC ACID [Concomitant]
     Indication: BEHCET'S SYNDROME
     Route: 048
  4. METHOTREXATE SODIUM [Concomitant]
     Indication: BEHCET'S SYNDROME
     Route: 048
  5. NAPROXEN [Concomitant]
     Indication: PAIN
     Route: 048
  6. CHOLCHICINE [Concomitant]
     Indication: DRUG USE FOR UNKNOWN INDICATION
  7. LANSOPRAZOLE [Concomitant]
     Indication: BEHCET'S SYNDROME

REACTIONS (4)
  - CHEILITIS [None]
  - HYPOPHAGIA [None]
  - NASAL ULCER [None]
  - STOMATITIS [None]
